FAERS Safety Report 18605248 (Version 2)
Quarter: 2021Q2

REPORT INFORMATION
  Report Type: Report from Study
  Country: DE (occurrence: DE)
  Receive Date: 20201211
  Receipt Date: 20210602
  Transmission Date: 20210717
  Serious: Yes (Hospitalization, Other)
  Sender: FDA-Public Use
  Company Number: DE-MYLANLABS-2020M1100176

PATIENT
  Age: 83 Year

DRUGS (23)
  1. ARA?C [Suspect]
     Active Substance: CYTARABINE
     Dosage: 10 MG (CYCLE 5; 1 CYCLE = 2 WEEKS; DAY 5)
  2. METHOTREXATE. [Concomitant]
     Active Substance: METHOTREXATE
     Dosage: 4000 MG/M2 (CYCLE 1?3; 1 CYCLE = 2 WEEKS; DAY 1)
     Route: 042
  3. RITUXIMAB. [Concomitant]
     Active Substance: RITUXIMAB
     Indication: CENTRAL NERVOUS SYSTEM LYMPHOMA
     Dosage: 375 MG/M2 (CYCLE 1?3; 1 CYCLE = 2 WEEKS; DAY 0)
     Route: 042
  4. METHOTREXATE. [Concomitant]
     Active Substance: METHOTREXATE
     Indication: CENTRAL NERVOUS SYSTEM LYMPHOMA
     Dosage: 4000 MG/M2 (CYCLE 5; 1 CYCLE = 2 WEEKS; DAY 1)
     Route: 042
  5. IFOSFAMIDE. [Concomitant]
     Active Substance: IFOSFAMIDE
     Dosage: 800 MG/M2 (CYCLE 5; 1 CYCLE = 2 WEEKS; DAYS 2?4)
     Route: 042
  6. PREDNISOLONE. [Suspect]
     Active Substance: PREDNISOLONE
     Dosage: 3 MG ICV (CYCLE 5; 1 CYCLE = 2 WEEKS; DAYS 2?4) WITH MTX
  7. ARA?C [Suspect]
     Active Substance: CYTARABINE
     Dosage: 10MG, INTRACEREBROVENTRICULAR (ICV; MODIFIED BONN PROTOCOL) CHEMOTHERAPY
  8. ARA?C [Concomitant]
     Active Substance: CYTARABINE
     Indication: CENTRAL NERVOUS SYSTEM LYMPHOMA
     Dosage: 3000 MG/M2 (CYCLE 4+6; 1 CYCLE = 3 WEEKS; DAYS 1?2)
     Route: 042
  9. METHOTREXATE. [Suspect]
     Active Substance: METHOTREXATE
     Dosage: INTRACEREBROVENTRICULAR (ICV; MODIFIED BONN PROTOCOL) CHEMOTHERAPY
  10. IFOSFAMIDE. [Concomitant]
     Active Substance: IFOSFAMIDE
     Indication: CENTRAL NERVOUS SYSTEM LYMPHOMA
     Dosage: 800 MG/M2 (CYCLE 1?3; 1 CYCLE = 2 WEEKS; DAYS 2?4)
     Route: 042
  11. SULFAMETHOXAZOLE W/TRIMETHOPRIM [Concomitant]
     Active Substance: SULFAMETHOXAZOLE\TRIMETHOPRIM
     Indication: PROPHYLAXIS
     Dosage: UNK, AT EACH CYCLE
  12. MESNA. [Concomitant]
     Active Substance: MESNA
     Indication: PROPHYLAXIS
     Dosage: UNK
     Route: 065
  13. PREDNISOLONE. [Suspect]
     Active Substance: PREDNISOLONE
     Dosage: INTRACEREBROVENTRICULAR (ICV; MODIFIED BONN PROTOCOL) CHEMOTHERAPY
  14. G?CSF [Suspect]
     Active Substance: GRANULOCYTE COLONY-STIMULATING FACTOR NOS
     Indication: PROPHYLAXIS
     Dosage: UNK, AT EACH CYCLE
  15. ACICLOVIR [Concomitant]
     Active Substance: ACYCLOVIR
     Indication: PROPHYLAXIS
     Dosage: UNK, AT EACH CYCLE
  16. RITUXIMAB. [Concomitant]
     Active Substance: RITUXIMAB
     Dosage: HIGH?DOSE SYSTEMIC METHOTREXATE (HDMTX)?BASED CHEMOTHERAPY; INDUCTION THERAPY
     Route: 042
  17. METHOTREXATE. [Suspect]
     Active Substance: METHOTREXATE
     Indication: CENTRAL NERVOUS SYSTEM LYMPHOMA
     Dosage: 2.5 MILLIGRAM
  18. METHOTREXATE. [Concomitant]
     Active Substance: METHOTREXATE
     Dosage: HIGH?DOSE SYSTEMIC METHOTREXATE (HDMTX)?BASED CHEMOTHERAPY; INDUCTION THERAPY; 4H INFUSION
     Route: 042
  19. ARA?C [Concomitant]
     Active Substance: CYTARABINE
     Dosage: CONSOLIDATION TREATMENT; 3H INFUSION
     Route: 042
  20. IFOSFAMIDE. [Concomitant]
     Active Substance: IFOSFAMIDE
     Dosage: HIGH?DOSE SYSTEMIC METHOTREXATE (HDMTX)?BASED CHEMOTHERAPY; INDUCTION THERAPY; 1H INFUSION
     Route: 042
  21. METHOTREXATE. [Suspect]
     Active Substance: METHOTREXATE
     Dosage: 2.5 MILLIGRAM (CYCLE 4+6; 1 CYCLE = 3 WEEKS; DAYS 3?5) WITH PREDNISOLONE
  22. PREDNISOLONE. [Suspect]
     Active Substance: PREDNISOLONE
     Indication: CENTRAL NERVOUS SYSTEM LYMPHOMA
     Dosage: 3 MG ICV (CYCLE 4+6; 1 CYCLE = 3 WEEKS; DAYS 3?5) WITH MTX
  23. ARA?C [Suspect]
     Active Substance: CYTARABINE
     Indication: CENTRAL NERVOUS SYSTEM LYMPHOMA
     Dosage: 10 MG (CYCLE 4+6; 1 CYCLE = 3 WEEKS; DAY 6)

REACTIONS (2)
  - Pneumonia [Recovering/Resolving]
  - Leukoencephalopathy [Recovering/Resolving]
